FAERS Safety Report 20923790 (Version 1)
Quarter: 2022Q2

REPORT INFORMATION
  Report Type: Spontaneous
  Country: CA (occurrence: CA)
  Receive Date: 20220607
  Receipt Date: 20220607
  Transmission Date: 20220721
  Serious: Yes (Other)
  Sender: FDA-Public Use
  Company Number: None

PATIENT
  Age: 58 Year
  Sex: Male

DRUGS (3)
  1. METHOTREXATE [Suspect]
     Active Substance: METHOTREXATE
     Indication: Rheumatoid arthritis
     Dosage: 1 EVERY 1 WEEKS
     Route: 048
  2. SIMPONI [Concomitant]
     Active Substance: GOLIMUMAB
     Route: 058
  3. XELJANZ XR [Concomitant]
     Active Substance: TOFACITINIB CITRATE
     Dosage: EVERY 1 DAY

REACTIONS (5)
  - Asthenia [Unknown]
  - Drug intolerance [Unknown]
  - Hepatic enzyme abnormal [Unknown]
  - Psoriasis [Unknown]
  - Rheumatoid factor positive [Unknown]
